FAERS Safety Report 7120515-5 (Version None)
Quarter: 2010Q4

REPORT INFORMATION
  Report Type: 
  Country: None (occurrence: None)
  Receive Date: 20101124
  Receipt Date: 20101115
  Transmission Date: 20110411
  Serious: Yes (Other)
  Sender: FDA-Public Use
  Company Number: US-PFIZER INC-2010150775

PATIENT
  Sex: Female
  Weight: 72.562 kg

DRUGS (12)
  1. PRISTIQ [Suspect]
     Indication: DEPRESSION
     Dosage: 100 MG, DAILY
     Dates: start: 20090101
  2. XOPENEX [Concomitant]
  3. ADVAIR DISKUS 100/50 [Concomitant]
  4. SIMVASTATIN [Concomitant]
  5. CELEBREX [Concomitant]
  6. LITHIUM CARBONATE [Concomitant]
     Indication: CYCLOTHYMIC DISORDER
     Dosage: 150 MG, 1X/DAY
  7. GABAPENTIN [Concomitant]
  8. PROPRANOLOL [Concomitant]
  9. TEMAZEPAM [Concomitant]
  10. TRAZODONE [Concomitant]
  11. NASONEX [Concomitant]
  12. WARFARIN [Concomitant]

REACTIONS (1)
  - TARDIVE DYSKINESIA [None]
